FAERS Safety Report 20357359 (Version 7)
Quarter: 2024Q1

REPORT INFORMATION
  Report Type: Spontaneous
  Country: US (occurrence: US)
  Receive Date: 20220120
  Receipt Date: 20240131
  Transmission Date: 20240410
  Serious: Yes (Other)
  Sender: FDA-Public Use
  Company Number: US-PFIZER INC-2020338239

PATIENT
  Age: 67 Year
  Sex: Female

DRUGS (2)
  1. EUCRISA [Suspect]
     Active Substance: CRISABOROLE
     Indication: Eczema
     Dosage: APPLY TO ECZEMA AA AREAS AT NIGHT MONDAY-FRIDAY, 1X/DAY
     Route: 061
  2. EUCRISA [Suspect]
     Active Substance: CRISABOROLE
     Dosage: 1X/DAY (EVERY QHS)
     Route: 061

REACTIONS (2)
  - Hypothyroidism [Unknown]
  - Blood cholesterol abnormal [Unknown]
